FAERS Safety Report 4331444-4 (Version None)
Quarter: 2004Q1

REPORT INFORMATION
  Report Type: 
  Country: None (occurrence: None)
  Receive Date: 20040329
  Receipt Date: 20040324
  Transmission Date: 20041129
  Serious: Yes (Other)
  Sender: FDA-Public Use
  Company Number: NSADSS2003018154

PATIENT
  Age: 22 Year
  Sex: Female
  Weight: 77.1115 kg

DRUGS (1)
  1. ORTHO TRI-CYCLEN LO [Suspect]
     Indication: ACNE
     Dosage: 1 DOSE(S, ORAL
     Route: 048
     Dates: start: 20021201, end: 20030301

REACTIONS (1)
  - LEUKOCYTOCLASTIC VASCULITIS [None]
